FAERS Safety Report 20127768 (Version 1)
Quarter: 2021Q4

REPORT INFORMATION
  Report Type: Spontaneous
  Country: DE (occurrence: DE)
  Receive Date: 20211129
  Receipt Date: 20211129
  Transmission Date: 20220303
  Serious: Yes (Other)
  Sender: FDA-Public Use
  Company Number: DE-002147023-NVSC2021DE218798

PATIENT
  Sex: Female

DRUGS (4)
  1. FENTANYL [Suspect]
     Active Substance: FENTANYL
     Indication: Paraplegia
     Dosage: UNK
     Route: 065
  2. FENTANYL [Suspect]
     Active Substance: FENTANYL
     Indication: Pain
  3. FENTANYL [Suspect]
     Active Substance: FENTANYL
     Indication: Paraplegia
     Dosage: 1 DOSAGE FORM (1 DF,(EVERY 3 DAYS))
     Route: 065
  4. FENTANYL [Suspect]
     Active Substance: FENTANYL
     Indication: Pain

REACTIONS (4)
  - Withdrawal syndrome [Not Recovered/Not Resolved]
  - Chills [Not Recovered/Not Resolved]
  - Pain [Not Recovered/Not Resolved]
  - Drug ineffective [Unknown]
